FAERS Safety Report 9266325 (Version 1)
Quarter: 2013Q2

REPORT INFORMATION
  Report Type: Spontaneous
  Country: US (occurrence: US)
  Receive Date: 20130502
  Receipt Date: 20130502
  Transmission Date: 20140414
  Serious: Yes (Hospitalization, Other)
  Sender: FDA-Public Use
  Company Number: US-ROCHE-1218125

PATIENT
  Sex: Female

DRUGS (3)
  1. AVASTIN [Suspect]
     Indication: OVARIAN CANCER
     Route: 065
  2. ABRAXANE [Concomitant]
  3. ALIMTA [Concomitant]

REACTIONS (6)
  - Pancytopenia [Unknown]
  - Microangiopathic haemolytic anaemia [Unknown]
  - Renal failure [Unknown]
  - White blood cell count decreased [Unknown]
  - Blood lactate dehydrogenase increased [Unknown]
  - Red blood cell schistocytes present [Unknown]
